FAERS Safety Report 8127381-X (Version None)
Quarter: 2012Q1

REPORT INFORMATION
  Report Type: 
  Country: None (occurrence: None)
  Receive Date: 20120210
  Receipt Date: 20120131
  Transmission Date: 20120608
  Serious: Yes (Hospitalization)
  Sender: FDA-Public Use
  Company Number: JP-BRISTOL-MYERS SQUIBB COMPANY-16387342

PATIENT
  Age: 64 Year
  Sex: Male

DRUGS (4)
  1. ABILIFY [Suspect]
     Indication: SCHIZOPHRENIA
     Dosage: 12MG 11JAN12-19JAN12(9DYS) 18MG 20JAN12-23JAN12(4DYS) 24MG 24JAN12-ONG
     Route: 048
     Dates: start: 20120111
  2. LODOPIN [Suspect]
     Dosage: 27DEC11-27DEC11(1DY):50MG 28DEC11-28DEC11(1DY):50MG 29DEC11-29DEC11(1DY):125MG
     Route: 048
     Dates: start: 20111227
  3. DOGMATYL [Suspect]
     Dosage: UNKNOWN-28DEC11 29DEC11-29DEC11(1DY) 375 MG/D
     Route: 048
  4. CREMIN [Suspect]
     Dosage: UNKNOWN-26DEC11 27DEC11-27DEC11(1DY)
     Route: 048

REACTIONS (1)
  - PERSECUTORY DELUSION [None]
